FAERS Safety Report 7386110-8 (Version None)
Quarter: 2011Q1

REPORT INFORMATION
  Report Type: 
  Country: None (occurrence: None)
  Receive Date: 20110331
  Receipt Date: 20110324
  Transmission Date: 20110831
  Serious: Yes (Hospitalization)
  Sender: FDA-Public Use
  Company Number: US-JNJFOC-20110311806

PATIENT
  Sex: Female
  Weight: 74.84 kg

DRUGS (5)
  1. LEVAQUIN [Suspect]
     Indication: SINUS CONGESTION
     Route: 048
  2. HYDROMET SYRUP [Concomitant]
     Indication: COUGH
     Dosage: EVERY 6 HOURS AS NEEDED
     Route: 048
  3. LEVAQUIN [Suspect]
     Indication: COUGH
     Route: 048
  4. DIOVAN [Concomitant]
     Indication: HYPERTENSION
     Route: 048
  5. LEVAQUIN [Suspect]
     Indication: WHEEZING
     Route: 048

REACTIONS (7)
  - NAUSEA [None]
  - HEART RATE IRREGULAR [None]
  - HYPERHIDROSIS [None]
  - VOMITING [None]
  - DIZZINESS [None]
  - STRESS [None]
  - PALPITATIONS [None]
